FAERS Safety Report 17233483 (Version 2)
Quarter: 2025Q2

REPORT INFORMATION
  Report Type: Spontaneous
  Country: ES (occurrence: ES)
  Receive Date: 20200104
  Receipt Date: 20250507
  Transmission Date: 20250716
  Serious: Yes (Life-Threatening, Hospitalization, Other)
  Sender: AUROBINDO
  Company Number: ES-AEMPS-584103

PATIENT
  Age: 50 Year
  Sex: Male

DRUGS (3)
  1. PAROXETINE [Suspect]
     Active Substance: PAROXETINE
     Indication: Depression
     Route: 065
     Dates: start: 2017
  2. TRAZODONE HYDROCHLORIDE [Suspect]
     Active Substance: TRAZODONE HYDROCHLORIDE
     Indication: Depression
     Route: 065
     Dates: start: 2017
  3. BROMAZEPAM [Suspect]
     Active Substance: BROMAZEPAM
     Indication: Depression
     Route: 065
     Dates: start: 2017

REACTIONS (3)
  - Loss of consciousness [Recovered/Resolved]
  - Suicide attempt [Recovered/Resolved]
  - Feeling of relaxation [Recovered/Resolved]

NARRATIVE: CASE EVENT DATE: 20180821
